FAERS Safety Report 13967362 (Version 2)
Quarter: 2019Q3

REPORT INFORMATION
  Report Type: Spontaneous
  Country: US (occurrence: US)
  Receive Date: 20170914
  Receipt Date: 20190830
  Transmission Date: 20191004
  Serious: No
  Sender: FDA-Public Use
  Company Number: US-PFIZER INC-2017392960

PATIENT
  Sex: Male

DRUGS (7)
  1. TRAMADOL HCL [Suspect]
     Active Substance: TRAMADOL HYDROCHLORIDE
     Dosage: UNK
  2. CIPROFLOXACIN. [Suspect]
     Active Substance: CIPROFLOXACIN
     Dosage: UNK
  3. HEPARIN SODIUM. [Suspect]
     Active Substance: HEPARIN SODIUM
     Dosage: UNK
  4. METFORMIN [Suspect]
     Active Substance: METFORMIN HYDROCHLORIDE
     Dosage: UNK
  5. TRAMADOL. [Suspect]
     Active Substance: TRAMADOL
     Dosage: UNK
  6. WARFARIN [Suspect]
     Active Substance: WARFARIN
     Dosage: UNK
  7. NIACIN. [Suspect]
     Active Substance: NIACIN
     Dosage: UNK

REACTIONS (1)
  - Drug hypersensitivity [Unknown]
